FAERS Safety Report 17649831 (Version 6)
Quarter: 2022Q2

REPORT INFORMATION
  Report Type: Spontaneous
  Country: US (occurrence: US)
  Receive Date: 20200409
  Receipt Date: 20220505
  Transmission Date: 20220720
  Serious: No
  Sender: FDA-Public Use
  Company Number: US-PFIZER INC-2020144243

PATIENT
  Age: 63 Year
  Sex: Female

DRUGS (9)
  1. XELJANZ [Suspect]
     Active Substance: TOFACITINIB CITRATE
     Indication: Psoriatic arthropathy
     Dosage: 5 MG, 2X/DAY (BY MOUTH 2 (TWO) TIMES DAILY)
     Route: 048
     Dates: start: 201911
  2. CHOLESTEROL [Concomitant]
     Active Substance: CHOLESTEROL
     Dosage: UNK
  3. FENOFIBRATE [Concomitant]
     Active Substance: FENOFIBRATE
     Dosage: UNK
  4. METFORMIN HYDROCHLORIDE [Concomitant]
     Active Substance: METFORMIN HYDROCHLORIDE
     Dosage: UNK
  5. GLIMEPIRIDE [Concomitant]
     Active Substance: GLIMEPIRIDE
     Dosage: UNK
  6. HUMULINE [Concomitant]
     Dosage: UNK
  7. ERGOCALCIFEROL [Concomitant]
     Active Substance: ERGOCALCIFEROL
     Dosage: UNK
  8. LEFLUNOMIDE [Concomitant]
     Active Substance: LEFLUNOMIDE
     Dosage: UNK
  9. CELECOXIB [Concomitant]
     Active Substance: CELECOXIB
     Indication: Arthritis
     Dosage: UNK

REACTIONS (7)
  - Product dose omission issue [Unknown]
  - Pain in extremity [Unknown]
  - Pain [Unknown]
  - Abdominal pain lower [Unknown]
  - Haematuria [Unknown]
  - Erythema [Unknown]
  - Dizziness [Unknown]
